FAERS Safety Report 24174817 (Version 2)
Quarter: 2024Q3

REPORT INFORMATION
  Report Type: Spontaneous
  Country: BR (occurrence: BR)
  Receive Date: 20240805
  Receipt Date: 20240813
  Transmission Date: 20241016
  Serious: Yes (Hospitalization, Other)
  Sender: MYLAN
  Company Number: BR-MYLANLABS-2024M1071958

PATIENT

DRUGS (4)
  1. CELEBRA [Suspect]
     Active Substance: CELECOXIB
     Indication: Arthritis
     Dosage: 100 MILLIGRAM, BID
     Route: 065
     Dates: start: 20240612
  2. CELEBRA [Suspect]
     Active Substance: CELECOXIB
     Dosage: 100 MILLIGRAM, BID
     Route: 065
     Dates: end: 20240626
  3. CARBAMAZEPINE [Concomitant]
     Active Substance: CARBAMAZEPINE
     Indication: Product used for unknown indication
     Dosage: 400 MILLIGRAM, QD (2 TABLET ONCE A DAY, BEFORE BEDTIME)
     Route: 048
     Dates: start: 2004
  4. SYNTHROID [Concomitant]
     Active Substance: LEVOTHYROXINE SODIUM
     Indication: Thyroid hormones decreased
     Dosage: 112 MICROGRAM, QD (1 TABLET ONCE A DAY, IN FASTING, BEFORE GETTING UP BED)
     Route: 065
     Dates: start: 2018

REACTIONS (1)
  - Thrombosis [Recovering/Resolving]

NARRATIVE: CASE EVENT DATE: 20240702
